FAERS Safety Report 14874989 (Version 7)
Quarter: 2019Q1

REPORT INFORMATION
  Report Type: Report from Study
  Country: US (occurrence: US)
  Receive Date: 20180510
  Receipt Date: 20190129
  Transmission Date: 20190417
  Serious: Yes (Other)
  Sender: FDA-Public Use
  Company Number: PHEH2018US017783

PATIENT
  Sex: Female

DRUGS (2)
  1. COSENTYX [Suspect]
     Active Substance: SECUKINUMAB
     Dosage: 300 MG, QMO
     Route: 058
  2. COSENTYX [Suspect]
     Active Substance: SECUKINUMAB
     Indication: PSORIATIC ARTHROPATHY
     Dosage: 300 MG, QW
     Route: 058

REACTIONS (13)
  - Ligament rupture [Unknown]
  - Psoriatic arthropathy [Unknown]
  - Weight increased [Unknown]
  - Stress [Unknown]
  - Depressed mood [Unknown]
  - Systemic lupus erythematosus [Unknown]
  - Meniscus injury [Unknown]
  - Rheumatoid arthritis [Unknown]
  - Large intestine polyp [Unknown]
  - Musculoskeletal stiffness [Not Recovered/Not Resolved]
  - Drug ineffective [Unknown]
  - Tendon injury [Unknown]
  - Inflammatory marker increased [Recovering/Resolving]
